FAERS Safety Report 20508657 (Version 1)
Quarter: 2022Q1

REPORT INFORMATION
  Report Type: Spontaneous
  Country: FI (occurrence: FI)
  Receive Date: 20220223
  Receipt Date: 20220223
  Transmission Date: 20220423
  Serious: No
  Sender: FDA-Public Use
  Company Number: FI-LUPIN PHARMACEUTICALS INC.-2022-02305

PATIENT
  Age: 54 Year
  Sex: Male

DRUGS (13)
  1. CEFUROXIME [Suspect]
     Active Substance: CEFUROXIME
     Indication: Erysipelas
     Dosage: UNK
     Route: 042
     Dates: start: 200604
  2. CEFUROXIME [Suspect]
     Active Substance: CEFUROXIME
     Dosage: 3 GRAM (SINGLE 3G DOSE)
     Route: 042
     Dates: start: 200710
  3. PENICILLIN V [Suspect]
     Active Substance: PENICILLIN V
     Indication: Erysipelas
     Dosage: UNK
     Route: 048
     Dates: start: 200610
  4. PENICILLIN V [Suspect]
     Active Substance: PENICILLIN V
     Dosage: UNK
     Route: 048
     Dates: start: 200805
  5. PENICILLIN G [Suspect]
     Active Substance: PENICILLIN G
     Indication: Erysipelas
     Dosage: UNK
     Route: 042
     Dates: start: 200604
  6. PENICILLIN G [Suspect]
     Active Substance: PENICILLIN G
     Dosage: UNK
     Route: 042
     Dates: start: 200805
  7. PENICILLIN G [Suspect]
     Active Substance: PENICILLIN G
     Dosage: UNK (4 MILLION IU X 4 PER DAY)
     Route: 042
     Dates: start: 200809
  8. CLINDAMYCIN [Concomitant]
     Active Substance: CLINDAMYCIN
     Indication: Erysipelas
     Dosage: UNK
     Route: 048
     Dates: start: 200604
  9. CLINDAMYCIN [Concomitant]
     Active Substance: CLINDAMYCIN
     Dosage: UNK
     Route: 048
     Dates: start: 2006
  10. CLINDAMYCIN [Concomitant]
     Active Substance: CLINDAMYCIN
     Dosage: UNK
     Route: 048
     Dates: start: 2006
  11. CLINDAMYCIN [Concomitant]
     Active Substance: CLINDAMYCIN
     Dosage: UNK
     Route: 048
     Dates: start: 200805
  12. CLINDAMYCIN [Concomitant]
     Active Substance: CLINDAMYCIN
     Dosage: UNK (600MG X 4 PER DAY)
     Route: 048
     Dates: start: 200809
  13. SERETIDE [Concomitant]
     Active Substance: FLUTICASONE PROPIONATE\SALMETEROL XINAFOATE
     Indication: Product used for unknown indication
     Dosage: UNK (INHALED AEROSOL, SERETIDE 50 UG/250 UG (SALMETEROL/FLUTICASONE PROPIONATE)
     Route: 045

REACTIONS (1)
  - Hypersensitivity [Unknown]

NARRATIVE: CASE EVENT DATE: 20080901
